APPROVED DRUG PRODUCT: VYZULTA
Active Ingredient: LATANOPROSTENE BUNOD
Strength: 0.024%
Dosage Form/Route: SOLUTION/DROPS;OPHTHALMIC
Application: N207795 | Product #001 | TE Code: AB
Applicant: BAUSCH AND LOMB INC
Approved: Nov 2, 2017 | RLD: Yes | RS: Yes | Type: RX

PATENTS:
Patent 8058467 | Expires: Feb 21, 2029